FAERS Safety Report 13141996 (Version 1)
Quarter: 2017Q1

REPORT INFORMATION
  Report Type: Spontaneous
  Country: IT (occurrence: IT)
  Receive Date: 20170124
  Receipt Date: 20170124
  Transmission Date: 20170428
  Serious: Yes (Other)
  Sender: FDA-Public Use
  Company Number: IT-TEVA-733225ACC

PATIENT
  Age: 74 Year
  Sex: Female

DRUGS (3)
  1. GASTROLOC [Concomitant]
     Indication: GASTRITIS
     Route: 048
  2. NOBISTAR [Concomitant]
     Route: 048
  3. CLOPIDOGREL [Suspect]
     Active Substance: CLOPIDOGREL BISULFATE
     Indication: PLATELET AGGREGATION INHIBITION
     Dosage: 1 DOSAGE FORMS DAILY;
     Route: 048
     Dates: start: 20161031, end: 20161107

REACTIONS (1)
  - Abdominal pain upper [Recovered/Resolved]

NARRATIVE: CASE EVENT DATE: 20161128
